FAERS Safety Report 4771015-9 (Version None)
Quarter: 2005Q3

REPORT INFORMATION
  Report Type: 
  Country: None (occurrence: None)
  Receive Date: 20050914
  Receipt Date: 20050831
  Transmission Date: 20060218
  Serious: Yes (Other)
  Sender: FDA-Public Use
  Company Number: A-CH2005-09547

PATIENT
  Age: 80 Year
  Sex: Female
  Weight: 66 kg

DRUGS (11)
  1. TRACLEER [Suspect]
     Indication: EXTREMITY NECROSIS
     Dosage: SEE IMAGE
     Route: 048
     Dates: start: 20050331, end: 20050401
  2. TRACLEER [Suspect]
     Indication: EXTREMITY NECROSIS
     Dosage: SEE IMAGE
     Route: 048
     Dates: start: 20050402, end: 20050417
  3. TRACLEER [Suspect]
     Indication: EXTREMITY NECROSIS
     Dosage: SEE IMAGE
     Route: 048
     Dates: start: 20050418
  4. STROMECTOL [Suspect]
     Dates: start: 20050416
  5. MORPHINE SULFATE [Concomitant]
  6. MORPHINE SULFATE [Concomitant]
  7. DURAGESIC-100 [Concomitant]
  8. NOCTRAN 1- (CLORAZEPATE DIPOTASSIUM, ACEPROMETAZINE, ACEPROMAZINE) [Concomitant]
  9. LEXOMIL (BROMAZEPAM) [Concomitant]
  10. RAMIPRIL [Concomitant]
  11. LOVENOX [Concomitant]

REACTIONS (1)
  - HEPATITIS CHOLESTATIC [None]
